FAERS Safety Report 8160484-2 (Version None)
Quarter: 2012Q1

REPORT INFORMATION
  Report Type: 
  Country: None (occurrence: None)
  Receive Date: 20120223
  Receipt Date: 20120216
  Transmission Date: 20120608
  Serious: Yes (Other)
  Sender: FDA-Public Use
  Company Number: US-US-EMD SERONO, INC.-7113883

PATIENT
  Age: 37 Year
  Sex: Male

DRUGS (1)
  1. INTERFERON BETA NOS [Suspect]
     Indication: MULTIPLE SCLEROSIS

REACTIONS (1)
  - NEUROLOGICAL DECOMPENSATION [None]
